FAERS Safety Report 14608403 (Version 3)
Quarter: 2018Q2

REPORT INFORMATION
  Report Type: Report from Study
  Country: FR (occurrence: FR)
  Receive Date: 20180307
  Receipt Date: 20180404
  Transmission Date: 20180711
  Serious: Yes (Death, Other)
  Sender: FDA-Public Use
  Company Number: FR-CELGENEUS-FRA-20180209888

PATIENT
  Age: 66 Year
  Sex: Female
  Weight: 45 kg

DRUGS (17)
  1. LEVOTHYROX [Concomitant]
     Active Substance: LEVOTHYROXINE
     Indication: THYROIDITIS
     Dosage: 50 MICROGRAM
     Route: 048
     Dates: start: 1993, end: 20180222
  2. DOLIPRANE [Concomitant]
     Active Substance: ACETAMINOPHEN
     Indication: HYPERTHERMIA
     Dosage: 16 GRAM
     Route: 048
     Dates: start: 20171215, end: 20180208
  3. MAG 2 [Concomitant]
     Active Substance: MAGNESIUM CHLORIDE
     Indication: HYPOMAGNESAEMIA
     Dosage: 4500 MILLIGRAM
     Route: 048
     Dates: start: 20180109, end: 20180219
  4. AZACITIDINE. [Suspect]
     Active Substance: AZACITIDINE
     Indication: ACUTE MYELOID LEUKAEMIA
     Dosage: 75 MILLIGRAM/SQ. METER
     Route: 058
     Dates: start: 20180103, end: 20180109
  5. TITANOREINE [Concomitant]
     Active Substance: CARRAGEENAN\TITANIUM\ZINC
     Indication: ANAL ULCER
     Dosage: 4 DOSAGE FORMS
     Route: 054
     Dates: start: 20180219, end: 20180219
  6. LEVOTHYROX [Concomitant]
     Active Substance: LEVOTHYROXINE
     Indication: THYROIDECTOMY
     Dosage: 62.5 MICROGRAM
     Route: 048
     Dates: start: 1993, end: 20180222
  7. DEXAMETHASONE. [Concomitant]
     Active Substance: DEXAMETHASONE
     Dosage: 10 MILLIGRAM
     Route: 048
     Dates: start: 20180117, end: 20180120
  8. DEXAMETHASONE. [Concomitant]
     Active Substance: DEXAMETHASONE
     Indication: HYPERTHERMIA
     Dosage: 20 MILLIGRAM
     Route: 041
     Dates: start: 20171224, end: 20180208
  9. DEXAMETHASONE. [Concomitant]
     Active Substance: DEXAMETHASONE
     Dosage: 10 MILLIGRAM
     Route: 048
     Dates: start: 20180124, end: 20180216
  10. ZOPHREN [Concomitant]
     Active Substance: ONDANSETRON
     Indication: PROPHYLAXIS OF NAUSEA AND VOMITING
     Dosage: 8 MILLIGRAM
     Route: 048
     Dates: start: 20180201, end: 20180207
  11. PHOSPHONEUROL [Concomitant]
     Indication: HYPOCALCAEMIA
     Dosage: 50GTT
     Route: 048
     Dates: start: 20180110, end: 20180222
  12. BISOPROLOL [Concomitant]
     Active Substance: BISOPROLOL
     Indication: ATRIAL FIBRILLATION
     Dosage: 2.5 MILLIGRAM
     Route: 048
     Dates: start: 20180116, end: 20180219
  13. ECONAZOLE [Concomitant]
     Active Substance: ECONAZOLE
     Indication: LOCALISED INFECTION
     Dosage: 2 DOSAGE FORMS
     Route: 061
     Dates: start: 20180119, end: 20180215
  14. AZACITIDINE. [Suspect]
     Active Substance: AZACITIDINE
     Dosage: 37.5 MG/M2
     Route: 058
     Dates: start: 20180201, end: 20180207
  15. VENETOCLAX. [Suspect]
     Active Substance: VENETOCLAX
     Indication: ACUTE MYELOID LEUKAEMIA
     Route: 048
     Dates: start: 20180103, end: 20180220
  16. MOVICOL [Concomitant]
     Active Substance: POLYETHYLENE GLYCOL 3350\POTASSIUM CHLORIDE\SODIUM BICARBONATE\SODIUM CHLORIDE
     Indication: CONSTIPATION PROPHYLAXIS
     Dosage: 13000 MILLIGRAM
     Route: 048
     Dates: start: 20180104, end: 20180219
  17. NOVORAPID [Concomitant]
     Active Substance: INSULIN ASPART
     Indication: HYPERGLYCAEMIA
     Route: 041
     Dates: start: 20180119, end: 20180219

REACTIONS (1)
  - Pneumonia [Fatal]

NARRATIVE: CASE EVENT DATE: 20180216
